FAERS Safety Report 9203540 (Version 1)
Quarter: 2013Q1

REPORT INFORMATION
  Report Type: Spontaneous
  Country: US (occurrence: None)
  Receive Date: 20130329
  Receipt Date: 20130329
  Transmission Date: 20140127
  Serious: No
  Sender: FDA-Public Use
  Company Number: None

PATIENT
  Sex: Male

DRUGS (1)
  1. KINERET 100MG/0.67ML SOBI [Suspect]
     Dosage: 100MG QD SQ
     Route: 058
     Dates: start: 20120901

REACTIONS (4)
  - Fatigue [None]
  - Headache [None]
  - Anaemia [None]
  - Middle insomnia [None]
